FAERS Safety Report 7411880-X (Version None)
Quarter: 2011Q2

REPORT INFORMATION
  Report Type: 
  Country: None (occurrence: None)
  Receive Date: 20110413
  Receipt Date: 20101015
  Transmission Date: 20111010
  Serious: Yes (Hospitalization, Other)
  Sender: FDA-Public Use
  Company Number: US-BAYER-201019460NA

PATIENT
  Age: 17 Year
  Sex: Female
  Weight: 58.957 kg

DRUGS (13)
  1. YASMIN [Suspect]
     Indication: ACNE
     Dosage: UNK UNK, QD
     Route: 048
     Dates: start: 20061001, end: 20070801
  2. PONSTEL [Concomitant]
  3. GUAIFENESIN PSE [Concomitant]
  4. ZYRTEC [Concomitant]
  5. SINGULAIR [Concomitant]
  6. FLOVENT HFA [Concomitant]
  7. ALBUTEROL INHALER [Concomitant]
  8. PREVACID [Concomitant]
     Dosage: UNK
     Dates: start: 20070409
  9. ADVIL LIQUI-GELS [Concomitant]
  10. NAPROXEN [Concomitant]
  11. METHYLPREDNISOLONE [Concomitant]
  12. YAZ [Suspect]
     Indication: ACNE
     Dosage: UNK UNK, QD
     Route: 048
     Dates: start: 20061001, end: 20070801
  13. NASONEX [Concomitant]

REACTIONS (6)
  - GALLBLADDER DISORDER [None]
  - BILIARY DYSKINESIA [None]
  - DIARRHOEA [None]
  - CONSTIPATION [None]
  - CHOLECYSTITIS [None]
  - PROCEDURAL PAIN [None]
